FAERS Safety Report 12431786 (Version 1)
Quarter: 2016Q2

REPORT INFORMATION
  Report Type: Spontaneous
  Country: JP (occurrence: JP)
  Receive Date: 20160603
  Receipt Date: 20160603
  Transmission Date: 20160815
  Serious: Yes (Hospitalization)
  Sender: FDA-Public Use
  Company Number: JP-ROCHE-1750610

PATIENT
  Sex: Female
  Weight: 51 kg

DRUGS (10)
  1. MAGNESIUM OXIDE. [Concomitant]
     Active Substance: MAGNESIUM OXIDE
     Dosage: AMOUNT OF 1 ONCE ADMINISTRATION: 330 (UNIT UNCERTAINTY)
     Route: 048
     Dates: end: 20160428
  2. FENTANYL. [Suspect]
     Active Substance: FENTANYL
     Indication: BREAST CANCER
     Route: 062
     Dates: start: 20160420
  3. NAIXAN [Concomitant]
     Active Substance: NAPROXEN SODIUM
     Dosage: AMOUNT OF 1 ONCE ADMINISTRATION: 100 (UNIT UNCERTAINTY)
     Route: 048
     Dates: start: 20160424, end: 20160428
  4. TRAMAL [Concomitant]
     Active Substance: TRAMADOL
     Indication: BREAST CANCER
     Dosage: TAKEN FOR PAIN
     Route: 030
     Dates: start: 20160422
  5. DEZOLAM [Concomitant]
     Active Substance: ETIZOLAM
     Dosage: AMOUNT OF 1 ONCE ADMINISTRATION: 0.5 (UNIT UNCERTAINTY)
     Route: 048
     Dates: end: 20160428
  6. DEZOLAM [Concomitant]
     Active Substance: ETIZOLAM
     Dosage: AMOUNT OF 1 ONCE ADMINISTRATION: 0.5 (UNIT UNCERTAINTY). TAKEN FOR INSOMNIA.
     Route: 048
     Dates: start: 20160502
  7. RIVOTRIL [Suspect]
     Active Substance: CLONAZEPAM
     Route: 048
     Dates: start: 20160426, end: 20160428
  8. TRAMAL [Concomitant]
     Active Substance: TRAMADOL
     Dosage: AMOUNT OF 1 ONCE ADMINISTRATION: 25 (UNIT UNCERTAINTY)
     Route: 048
     Dates: end: 20160428
  9. RIVOTRIL [Suspect]
     Active Substance: CLONAZEPAM
     Indication: PRODUCT USED FOR UNKNOWN INDICATION
     Route: 048
     Dates: end: 20160418
  10. DUROTEP [Suspect]
     Active Substance: FENTANYL
     Indication: PRODUCT USED FOR UNKNOWN INDICATION
     Route: 062
     Dates: end: 20160420

REACTIONS (2)
  - Depressed level of consciousness [Recovered/Resolved]
  - Sedation [Recovered/Resolved]
